FAERS Safety Report 10277736 (Version 2)
Quarter: 2014Q3

REPORT INFORMATION
  Report Type: Spontaneous
  Country: GB (occurrence: GB)
  Receive Date: 20140704
  Receipt Date: 20140812
  Transmission Date: 20150326
  Serious: Yes (Hospitalization, Other)
  Sender: FDA-Public Use
  Company Number: GB-PFIZER INC-2014179056

PATIENT
  Sex: Female

DRUGS (3)
  1. PHENYTOIN. [Suspect]
     Active Substance: PHENYTOIN
     Dosage: 200 MG, UNK
  2. EPILIM [Suspect]
     Active Substance: VALPROATE SODIUM
     Indication: CONVULSION
     Dosage: 500 MG, 2X/DAY
     Route: 065
     Dates: start: 1984
  3. PHENYTOIN. [Suspect]
     Active Substance: PHENYTOIN
     Indication: CONVULSION
     Dosage: 300 MG, UNK
     Dates: start: 1984

REACTIONS (3)
  - Anticonvulsant drug level abnormal [Unknown]
  - Feeling abnormal [Unknown]
  - Convulsion [Unknown]

NARRATIVE: CASE EVENT DATE: 2010
